FAERS Safety Report 12622241 (Version 4)
Quarter: 2019Q4

REPORT INFORMATION
  Report Type: Spontaneous
  Country: US (occurrence: US)
  Receive Date: 20160804
  Receipt Date: 20191021
  Transmission Date: 20200122
  Serious: Yes (Other)
  Sender: FDA-Public Use
  Company Number: US-PFIZER INC-2016373860

PATIENT
  Age: 47 Year
  Sex: Male

DRUGS (4)
  1. VIAGRA [Suspect]
     Active Substance: SILDENAFIL CITRATE
     Dosage: 100 MG ONCE A DAY, AS NEEDED
     Route: 048
     Dates: start: 2007, end: 2009
  2. VIAGRA [Suspect]
     Active Substance: SILDENAFIL CITRATE
     Dosage: 100 MG ONCE A DAY, AS NEEDED
     Route: 048
     Dates: start: 2010, end: 2013
  3. VIAGRA [Suspect]
     Active Substance: SILDENAFIL CITRATE
     Dosage: 100 MG ONCE A DAY, AS NEEDED
     Route: 048
     Dates: start: 2009, end: 2010
  4. VIAGRA [Suspect]
     Active Substance: SILDENAFIL CITRATE
     Indication: ERECTILE DYSFUNCTION
     Dosage: 100 MG ONCE A DAY, AS NEEDED
     Route: 048
     Dates: start: 200306, end: 2007

REACTIONS (1)
  - Malignant melanoma [Unknown]

NARRATIVE: CASE EVENT DATE: 20050323
